FAERS Safety Report 23188787 (Version 2)
Quarter: 2024Q1

REPORT INFORMATION
  Report Type: Report from Study
  Country: US (occurrence: US)
  Receive Date: 20231115
  Receipt Date: 20240104
  Transmission Date: 20240410
  Serious: No
  Sender: FDA-Public Use
  Company Number: US-LUNDBECK-DKLU3069302

PATIENT
  Age: 61 Year
  Sex: Female

DRUGS (1)
  1. VYEPTI [Suspect]
     Active Substance: EPTINEZUMAB-JJMR
     Indication: Migraine
     Route: 041
     Dates: start: 20231013

REACTIONS (3)
  - Migraine [Not Recovered/Not Resolved]
  - Infusion site coldness [Unknown]
  - Drug ineffective [Unknown]
